FAERS Safety Report 9196871 (Version 2)
Quarter: 2013Q2

REPORT INFORMATION
  Report Type: Spontaneous
  Country: GB (occurrence: GB)
  Receive Date: 20130328
  Receipt Date: 20130515
  Transmission Date: 20140414
  Serious: Yes (Other)
  Sender: FDA-Public Use
  Company Number: GB-PFIZER INC-2013095658

PATIENT
  Age: 42 Year
  Sex: Female
  Weight: 52 kg

DRUGS (1)
  1. CHAMPIX [Suspect]
     Indication: SMOKING CESSATION THERAPY
     Dosage: 0.5 MG, UNK
     Route: 048
     Dates: start: 20121203, end: 20121218

REACTIONS (8)
  - Mental status changes [Unknown]
  - Psychotic disorder [Recovered/Resolved]
  - Self-injurious ideation [Recovered/Resolved]
  - Anxiety [Recovered/Resolved]
  - Confusional state [Recovered/Resolved]
  - Poor quality sleep [Recovered/Resolved]
  - Drug abuse [Unknown]
  - Therapeutic response unexpected [Unknown]
